FAERS Safety Report 10932694 (Version 1)
Quarter: 2015Q1

REPORT INFORMATION
  Report Type: Spontaneous
  Country: US (occurrence: None)
  Receive Date: 20150318
  Receipt Date: 20150318
  Transmission Date: 20150721
  Serious: No
  Sender: FDA-Public Use
  Company Number: 1210513-2015-00105

PATIENT
  Sex: Female

DRUGS (2)
  1. LANSINOH LANOLIN [Suspect]
     Active Substance: LANOLIN
     Indication: PROPHYLAXIS
     Route: 061
  2. LANSINOH LANOLIN [Suspect]
     Active Substance: LANOLIN
     Indication: SKIN DISORDER
     Route: 061

REACTIONS (1)
  - Rash [None]

NARRATIVE: CASE EVENT DATE: 20090403
